FAERS Safety Report 18596762 (Version 1)
Quarter: 2020Q4

REPORT INFORMATION
  Report Type: Spontaneous
  Country: NL (occurrence: NL)
  Receive Date: 20201209
  Receipt Date: 20201209
  Transmission Date: 20210114
  Serious: Yes (Life-Threatening, Hospitalization)
  Sender: FDA-Public Use
  Company Number: NL-MYLANLABS-2020M1100187

PATIENT
  Sex: Male
  Weight: 72.8 kg

DRUGS (15)
  1. LOPERAMIDE [Concomitant]
     Active Substance: LOPERAMIDE
     Dosage: CAPSULE, 2 MG (MILLIGRAM)
  2. OMEPRAZOL                          /00661201/ [Concomitant]
     Active Substance: OMEPRAZOLE
     Dosage: MAAGSAPRESISTENTE TABLET, 20 MG (MILLIGRAM)
  3. PARACETAMOL [Concomitant]
     Active Substance: ACETAMINOPHEN
     Dosage: TABLET, 500 MG (MILLIGRAM)
  4. CALCIUMCARBIMIDUM [Concomitant]
     Dosage: ZAKJE (BRUISGRANULAAT), 1,25 G (GRAM)/880 EENHEDEN
  5. METOPROLOL. [Concomitant]
     Active Substance: METOPROLOL
     Dosage: TABLET, 50 MG (MILLIGRAM)
  6. FENTANYL. [Concomitant]
     Active Substance: FENTANYL
     Dosage: PLEISTER, 12 ?G (MICROGRAM) PER UUR
  7. NIFEDIPINE. [Concomitant]
     Active Substance: NIFEDIPINE
     Dosage: TABLET, 30 MG
  8. ATORVASTATINE                      /01326101/ [Concomitant]
     Active Substance: ATORVASTATIN
     Dosage: TABLET, 40 MG (MILLIGRAM)
  9. SALBUTAMOL [Concomitant]
     Active Substance: ALBUTEROL
     Dosage: INHALATIEPOEDER, 100 ?G/DOSIS (MICROGRAM PER DOSIS)
  10. SALMETEROL [Concomitant]
     Active Substance: SALMETEROL
     Dosage: AEROSOL, 25 ?G/DOSIS (MICROGRAM PER DOSIS)
  11. TRANEXAMIC ACID. [Suspect]
     Active Substance: TRANEXAMIC ACID
     Indication: RECTAL HAEMORRHAGE
     Dosage: 1 GRAM ONCE
     Dates: start: 20201027
  12. MACROGOL [Concomitant]
     Active Substance: POLYETHYLENE GLYCOLS
     Dosage: POEDER 13,8 G
  13. LEVODOPA BENSERAZIDE [Concomitant]
     Active Substance: BENSERAZIDE\LEVODOPA
     Dosage: TABLET, 100/25 MG (MILLIGRAM)
  14. TRANEXAMIC ACID. [Suspect]
     Active Substance: TRANEXAMIC ACID
     Indication: SURGERY
  15. CLOPIDOGREL [Concomitant]
     Active Substance: CLOPIDOGREL BISULFATE
     Dosage: TABLET, 75 MG (MILLIGRAM)

REACTIONS (1)
  - Epilepsy [Recovered/Resolved]
